FAERS Safety Report 4303751-2 (Version None)
Quarter: 2004Q1

REPORT INFORMATION
  Report Type: 
  Country: None (occurrence: None)
  Receive Date: 20040225
  Receipt Date: 20040216
  Transmission Date: 20041129
  Serious: Yes (Other)
  Sender: FDA-Public Use
  Company Number: PHBS2004JP02309

PATIENT
  Age: 90 Year
  Sex: Female

DRUGS (1)
  1. HYDERGINE [Suspect]
     Route: 048

REACTIONS (1)
  - INTERSTITIAL LUNG DISEASE [None]
